FAERS Safety Report 15868808 (Version 1)
Quarter: 2019Q1

REPORT INFORMATION
  Report Type: Spontaneous
  Country: GB (occurrence: FR)
  Receive Date: 20190125
  Receipt Date: 20190125
  Transmission Date: 20190417
  Serious: Yes (Hospitalization)
  Sender: FDA-Public Use
  Company Number: FR-FRESENIUS KABI-FK201900690

PATIENT
  Age: 61 Year
  Sex: Male
  Weight: 123 kg

DRUGS (10)
  1. LIDOCAINE. [Suspect]
     Active Substance: LIDOCAINE
     Route: 042
     Dates: start: 20170622, end: 20170622
  2. CISATRACURIUM. [Suspect]
     Active Substance: CISATRACURIUM
     Indication: INDUCTION OF ANAESTHESIA
     Route: 042
     Dates: start: 20170622, end: 20170622
  3. CEFAZOLIN [Suspect]
     Active Substance: CEFAZOLIN
     Indication: INDUCTION OF ANAESTHESIA
     Route: 042
     Dates: start: 20170622, end: 20170622
  4. CISATRACURIUM. [Suspect]
     Active Substance: CISATRACURIUM
     Route: 042
     Dates: start: 20170622, end: 20170622
  5. SUCCINYLCHOLINE CHLORIDE. [Suspect]
     Active Substance: SUCCINYLCHOLINE CHLORIDE
     Indication: INDUCTION OF ANAESTHESIA
     Route: 042
     Dates: start: 20170622, end: 20170622
  6. CISATRACURIUM. [Suspect]
     Active Substance: CISATRACURIUM
     Route: 042
     Dates: start: 20170622, end: 20170622
  7. SUFENTANIL [Suspect]
     Active Substance: SUFENTANIL
     Indication: INDUCTION OF ANAESTHESIA
     Route: 042
     Dates: start: 20170622, end: 20170622
  8. PROPOFOL (MANUFACTURER UNKNOWN) [Suspect]
     Active Substance: PROPOFOL
     Indication: INDUCTION OF ANAESTHESIA
     Route: 042
     Dates: start: 20170622, end: 20170622
  9. LIDOCAINE. [Suspect]
     Active Substance: LIDOCAINE
     Indication: INDUCTION OF ANAESTHESIA
     Route: 042
     Dates: start: 20170622, end: 20170622
  10. CISATRACURIUM. [Suspect]
     Active Substance: CISATRACURIUM
     Route: 042
     Dates: start: 20170622, end: 20170622

REACTIONS (1)
  - Anaphylactic shock [Recovered/Resolved]

NARRATIVE: CASE EVENT DATE: 20170622
